FAERS Safety Report 4562411-3 (Version None)
Quarter: 2005Q1

REPORT INFORMATION
  Report Type: 
  Country: None (occurrence: None)
  Receive Date: 20050127
  Receipt Date: 20041027
  Transmission Date: 20050727
  Serious: No
  Sender: FDA-Public Use
  Company Number: US-BRISTOL-MYERS SQUIBB COMPANY-12749354

PATIENT
  Sex: Female

DRUGS (2)
  1. KENALOG [Suspect]
     Indication: UPPER RESPIRATORY TRACT INFECTION
     Dosage: FIRST INJECTIONS IN APR-2004 AND SECOND IN MAY-2004
     Route: 030
     Dates: start: 20040401
  2. BICILLIN [Suspect]
     Indication: UPPER RESPIRATORY TRACT INFECTION
     Dosage: FIRST INJECTIONS IN APR-2004 AND SECOND IN MAY-2004
     Route: 030
     Dates: start: 20040501

REACTIONS (2)
  - INJECTION SITE ATROPHY [None]
  - INJECTION SITE DISCOLOURATION [None]
